FAERS Safety Report 5537763-8 (Version None)
Quarter: 2007Q4

REPORT INFORMATION
  Report Type: 
  Country: None (occurrence: None)
  Receive Date: 20071207
  Receipt Date: 20071127
  Transmission Date: 20080405
  Serious: Yes (Other)
  Sender: FDA-Public Use
  Company Number: US-PFIZER INC-2006050762

PATIENT
  Sex: Female

DRUGS (10)
  1. LYRICA [Suspect]
     Indication: CENTRAL PAIN SYNDROME
     Route: 048
  2. LYRICA [Suspect]
     Indication: MUSCLE SPASTICITY
  3. LYRICA [Suspect]
     Indication: NEURALGIA
  4. ALL OTHER THERAPEUTIC PRODUCTS [Concomitant]
  5. PRIMIDONE [Concomitant]
  6. OXYCODONE HCL [Concomitant]
     Route: 048
  7. DIAZEPAM [Concomitant]
     Indication: MUSCLE SPASTICITY
     Route: 048
  8. ZOCOR [Concomitant]
  9. VALSARTAN [Concomitant]
     Route: 065
  10. DETROL [Concomitant]
     Route: 065

REACTIONS (16)
  - ASTHENIA [None]
  - BACK PAIN [None]
  - BURNING SENSATION [None]
  - CENTRAL PAIN SYNDROME [None]
  - CEREBROVASCULAR ACCIDENT [None]
  - CONDITION AGGRAVATED [None]
  - DRUG INEFFECTIVE [None]
  - DYSPNOEA [None]
  - EPISTAXIS [None]
  - FATIGUE [None]
  - FEELING ABNORMAL [None]
  - HYPOAESTHESIA [None]
  - ILL-DEFINED DISORDER [None]
  - NEURALGIA [None]
  - PAIN [None]
  - VERTIGO [None]
